FAERS Safety Report 15778764 (Version 1)
Quarter: 2019Q1

REPORT INFORMATION
  Report Type: Spontaneous
  Country: US (occurrence: US)
  Receive Date: 20190101
  Receipt Date: 20190101
  Transmission Date: 20190417
  Serious: Yes (Hospitalization)
  Sender: FDA-Public Use
  Company Number: US-ROCHE-2235018

PATIENT
  Sex: Female
  Weight: 6.58 kg

DRUGS (6)
  1. VITAMIN K1 [Concomitant]
     Active Substance: PHYTONADIONE
     Dosage: ONGOING:UNKNOWN
     Route: 065
     Dates: start: 20181105
  2. CREON [Concomitant]
     Active Substance: PANCRELIPASE AMYLASE\PANCRELIPASE LIPASE\PANCRELIPASE PROTEASE
     Dosage: ONGOING:UNKNOWN
     Route: 048
     Dates: start: 20181105
  3. PULMOZYME [Suspect]
     Active Substance: DORNASE ALFA
     Indication: CYSTIC FIBROSIS LUNG
     Route: 048
     Dates: start: 20181106
  4. VENTOLIN HFA [Concomitant]
     Active Substance: ALBUTEROL SULFATE
     Dosage: ONGOING:UNKNOWN
     Route: 065
     Dates: start: 20181105
  5. ALBUTEROL SULFATE. [Concomitant]
     Active Substance: ALBUTEROL SULFATE
     Dosage: ONGOING:UNKNOWN
     Route: 048
     Dates: start: 20181105
  6. PULMOZYME [Suspect]
     Active Substance: DORNASE ALFA
     Indication: LUNG DISORDER

REACTIONS (1)
  - Vomiting [Unknown]
